FAERS Safety Report 24876819 (Version 1)
Quarter: 2025Q1

REPORT INFORMATION
  Report Type: Spontaneous
  Country: JP (occurrence: JP)
  Receive Date: 20250123
  Receipt Date: 20250123
  Transmission Date: 20250409
  Serious: Yes (Other)
  Sender: Haleon PLC
  Company Number: JP-JNJFOC-20240633531

PATIENT

DRUGS (1)
  1. NICOTINE TRANSDERMAL SYSTEM [Suspect]
     Active Substance: NICOTINE
     Indication: Smoking cessation therapy
     Route: 065

REACTIONS (5)
  - Incorrect product administration duration [Not Recovered/Not Resolved]
  - Thirst [Unknown]
  - Depressed mood [Unknown]
  - Middle insomnia [Unknown]
  - Drug dependence [Not Recovered/Not Resolved]
